FAERS Safety Report 18381795 (Version 4)
Quarter: 2021Q1

REPORT INFORMATION
  Report Type: Spontaneous
  Country: DE (occurrence: DE)
  Receive Date: 20201014
  Receipt Date: 20210127
  Transmission Date: 20210419
  Serious: No
  Sender: FDA-Public Use
  Company Number: DE-PFIZER INC-2020390046

PATIENT
  Age: 39 Year
  Sex: Female
  Weight: 67 kg

DRUGS (1)
  1. SAYANA [Suspect]
     Active Substance: MEDROXYPROGESTERONE
     Indication: CONTRACEPTION
     Dosage: UNK (104MG/0.65ML), EVERY 3 MONTHS
     Route: 058

REACTIONS (2)
  - Product administration error [Unknown]
  - Device issue [Unknown]

NARRATIVE: CASE EVENT DATE: 20201006
